FAERS Safety Report 9819494 (Version 1)
Quarter: 2014Q1

REPORT INFORMATION
  Report Type: Spontaneous
  Country: GB (occurrence: GB)
  Receive Date: 20140115
  Receipt Date: 20140115
  Transmission Date: 20141002
  Serious: Yes (Life-Threatening)
  Sender: FDA-Public Use
  Company Number: CHNY2014GB000480

PATIENT
  Sex: 0

DRUGS (9)
  1. CHLORHEXIDINE [Suspect]
     Indication: PREMEDICATION
     Dosage: UNK
     Route: 061
     Dates: start: 20130522, end: 20130522
  2. GENTAMICIN [Suspect]
     Indication: ANTIBIOTIC PROPHYLAXIS
     Dosage: 5 MG/KG, UNK
     Route: 042
     Dates: start: 20130522, end: 20130522
  3. ALLOPURINOL [Concomitant]
  4. AMLODIPINE [Concomitant]
  5. ASPIRIN [Concomitant]
  6. TAMSULOSIN [Concomitant]
  7. FENOFIBRATE [Concomitant]
  8. BENDROFLUMETHIAZIDE [Concomitant]
  9. RAMIPRIL [Concomitant]

REACTIONS (4)
  - Hypotension [Recovered/Resolved]
  - Tachycardia [Recovered/Resolved]
  - Hypersensitivity [Recovered/Resolved]
  - Swelling [Recovered/Resolved]
